FAERS Safety Report 21920490 (Version 9)
Quarter: 2025Q2

REPORT INFORMATION
  Report Type: Spontaneous
  Country: US (occurrence: US)
  Receive Date: 20230127
  Receipt Date: 20250401
  Transmission Date: 20250716
  Serious: Yes (Hospitalization, Other)
  Sender: PFIZER
  Company Number: US-PFIZER INC-202300031101

PATIENT
  Age: 84 Year
  Sex: Male
  Weight: 104 kg

DRUGS (3)
  1. VYNDAMAX [Suspect]
     Active Substance: TAFAMIDIS
     Indication: Cardiac disorder
     Dosage: 61 MG, 1X/DAY
     Route: 048
     Dates: start: 202012
  2. VYNDAMAX [Suspect]
     Active Substance: TAFAMIDIS
     Indication: Amyloidosis
     Dosage: 61MG ONCE A DAY BY MOUTH
     Route: 048
  3. VYNDAMAX [Suspect]
     Active Substance: TAFAMIDIS

REACTIONS (4)
  - Myocardial infarction [Recovering/Resolving]
  - Confusional state [Unknown]
  - Malaise [Unknown]
  - Renal impairment [Unknown]

NARRATIVE: CASE EVENT DATE: 20230210
